FAERS Safety Report 9777584 (Version 7)
Quarter: 2015Q4

REPORT INFORMATION
  Report Type: Spontaneous
  Country: FI (occurrence: FI)
  Receive Date: 20131222
  Receipt Date: 20151009
  Transmission Date: 20160305
  Serious: Yes (Hospitalization, Other)
  Sender: FDA-Public Use
  Company Number: FI-SA-2013SA128611

PATIENT
  Sex: Male

DRUGS (12)
  1. PANADOL [Concomitant]
     Active Substance: ACETAMINOPHEN
     Indication: PREMEDICATION
     Dates: start: 20131209, end: 20131213
  2. CALCICHEW [Concomitant]
     Active Substance: CALCIUM CARBONATE
  3. EFFEXOR [Concomitant]
     Active Substance: VENLAFAXINE HYDROCHLORIDE
  4. LEMTRADA [Suspect]
     Active Substance: ALEMTUZUMAB
     Indication: MULTIPLE SCLEROSIS
     Route: 042
     Dates: start: 2014, end: 2014
  5. PREDNISOLONE. [Concomitant]
     Active Substance: PREDNISOLONE
     Indication: URTICARIA
     Route: 048
     Dates: start: 20131213, end: 20131213
  6. CANDESARTAN [Concomitant]
     Active Substance: CANDESARTAN
  7. LEMTRADA [Suspect]
     Active Substance: ALEMTUZUMAB
     Indication: MULTIPLE SCLEROSIS
     Route: 042
     Dates: start: 20131209, end: 20131213
  8. VALACICLOVIR HYDROCHLORIDE [Concomitant]
     Active Substance: VALACYCLOVIR HYDROCHLORIDE
  9. SOLU-MEDROL [Concomitant]
     Active Substance: METHYLPREDNISOLONE SODIUM SUCCINATE
     Indication: PREMEDICATION
     Route: 042
     Dates: start: 20131209, end: 20131211
  10. TRIMOPAN [Concomitant]
  11. VITAMIN D [Concomitant]
     Active Substance: CHOLECALCIFEROL
  12. CETIRIZINE DIHYDROCHLORIDE [Concomitant]
     Active Substance: CETIRIZINE HYDROCHLORIDE
     Indication: PREMEDICATION
     Dates: start: 20131209, end: 20131213

REACTIONS (14)
  - Muscle spasticity [Recovered/Resolved]
  - Oropharyngeal pain [Recovered/Resolved]
  - Lymphocyte count decreased [Recovered/Resolved]
  - Urticaria [Recovered/Resolved]
  - Tendonitis [Not Recovered/Not Resolved]
  - Cholelithiasis [Recovered/Resolved]
  - C-reactive protein increased [Recovered/Resolved]
  - Headache [Recovered/Resolved]
  - Thrombocytopenia [Recovered/Resolved]
  - Pyrexia [Recovered/Resolved]
  - Fatigue [Recovered/Resolved]
  - Abdominal pain [Recovered/Resolved]
  - Arthralgia [Not Recovered/Not Resolved]
  - Cholecystitis infective [Recovered/Resolved]

NARRATIVE: CASE EVENT DATE: 2013
